FAERS Safety Report 8584742-2 (Version None)
Quarter: 2012Q3

REPORT INFORMATION
  Report Type: 
  Country: None (occurrence: None)
  Receive Date: 20120810
  Receipt Date: 20120731
  Transmission Date: 20120928
  Serious: Yes (Hospitalization)
  Sender: FDA-Public Use
  Company Number: US-BAYER-2012-079186

PATIENT
  Age: 32 Year
  Sex: Female
  Weight: 64.308 kg

DRUGS (4)
  1. YASMIN [Suspect]
     Indication: CONTRACEPTION
  2. DROSPIRENONE AND ETHINYL ESTRADIOL [Suspect]
  3. ALBUTEROL [Concomitant]
     Dosage: UNK
     Route: 045
     Dates: start: 20090819
  4. XANAX [Concomitant]
     Dosage: UNK
     Route: 048
     Dates: start: 20090819

REACTIONS (1)
  - PULMONARY EMBOLISM [None]
